FAERS Safety Report 14704753 (Version 2)
Quarter: 2018Q2

REPORT INFORMATION
  Report Type: Spontaneous
  Country: US (occurrence: US)
  Receive Date: 20180402
  Receipt Date: 20180403
  Transmission Date: 20180711
  Serious: No
  Sender: FDA-Public Use
  Company Number: US-BAYER-2018-056704

PATIENT
  Age: 72 Year
  Sex: Female

DRUGS (1)
  1. ALEVE [Suspect]
     Active Substance: NAPROXEN SODIUM
     Indication: PAIN
     Dosage: UNK UNK, QD
     Route: 048
     Dates: start: 2017, end: 2017

REACTIONS (2)
  - Incorrect drug administration duration [Unknown]
  - Skin irritation [Unknown]

NARRATIVE: CASE EVENT DATE: 2017
